FAERS Safety Report 9063703 (Version 1)
Quarter: 2013Q1

REPORT INFORMATION
  Report Type: Report from Study
  Country: US (occurrence: US)
  Receive Date: 20130131
  Receipt Date: 20130131
  Transmission Date: 20140127
  Serious: No
  Sender: FDA-Public Use
  Company Number: US-ABBOTT-12P-163-0994298-00

PATIENT
  Age: 57 Year
  Sex: Female
  Weight: 80.36 kg

DRUGS (14)
  1. HUMIRA [Suspect]
     Indication: CROHN^S DISEASE
     Dosage: 160 MG LOADING
     Route: 058
     Dates: start: 20120921, end: 20120921
  2. HUMIRA [Suspect]
     Dosage: 80 MG
     Dates: start: 20121005, end: 20121005
  3. HUMIRA [Suspect]
  4. FISH OIL [Concomitant]
     Indication: PRODUCT USED FOR UNKNOWN INDICATION
     Dosage: 1200 MG 3 TABS DAILY
  5. BUDESONIDE [Concomitant]
     Indication: PRODUCT USED FOR UNKNOWN INDICATION
     Dosage: 3 MG 3 CAPSULES DAILY
  6. XANAX [Concomitant]
     Indication: PRODUCT USED FOR UNKNOWN INDICATION
     Dosage: 0.2 MG 1/2 TAB AS NEEDED
  7. IRON [Concomitant]
     Indication: PRODUCT USED FOR UNKNOWN INDICATION
     Dosage: 65 MG 3 TABS DAILY
  8. LIALDA [Concomitant]
     Indication: PRODUCT USED FOR UNKNOWN INDICATION
     Dosage: 1.2 GRAM 3 TABS DAILY
  9. ALLOPURINOL [Concomitant]
     Indication: PRODUCT USED FOR UNKNOWN INDICATION
  10. MERCAPTOPURINE [Concomitant]
     Indication: PRODUCT USED FOR UNKNOWN INDICATION
  11. TRIAMTERENE [Concomitant]
     Indication: PRODUCT USED FOR UNKNOWN INDICATION
  12. ALIGN [Concomitant]
     Indication: PRODUCT USED FOR UNKNOWN INDICATION
  13. PROCTOSOL [Concomitant]
     Indication: PRODUCT USED FOR UNKNOWN INDICATION
  14. TRIAMTERENE AND HYDROCHLOROTHIAZID [Concomitant]
     Dosage: 25 MG

REACTIONS (4)
  - Diarrhoea [Recovered/Resolved]
  - Blood potassium decreased [Not Recovered/Not Resolved]
  - Cardiac murmur [Unknown]
  - Weight increased [Not Recovered/Not Resolved]
